FAERS Safety Report 5115679-9 (Version None)
Quarter: 2006Q3

REPORT INFORMATION
  Report Type: 
  Country: None (occurrence: None)
  Receive Date: 20060926
  Receipt Date: 20060926
  Transmission Date: 20061208
  Serious: Yes (Other)
  Sender: FDA-Public Use
  Company Number: None

PATIENT
  Age: 81 Year
  Sex: Male
  Weight: 81.6 kg

DRUGS (12)
  1. FERROUS GLUCONATE [Suspect]
  2. CETIRIZINE HCL [Concomitant]
  3. FERROUS SO4 [Concomitant]
  4. GABAPENTIN [Concomitant]
  5. COUMADIN [Concomitant]
  6. FLUNISOLIDE [Concomitant]
  7. SIMVASTATIN [Concomitant]
  8. FINASTERIDE [Concomitant]
  9. LISINOPRIL [Concomitant]
  10. OMEPRAZOLE [Concomitant]
  11. DM / GUAIFENESN [Concomitant]
  12. POTASSIUM CHLORIDE [Concomitant]

REACTIONS (1)
  - DIARRHOEA [None]
